FAERS Safety Report 5809322-0 (Version None)
Quarter: 2008Q3

REPORT INFORMATION
  Report Type: 
  Country: None (occurrence: None)
  Receive Date: 20080714
  Receipt Date: 20080704
  Transmission Date: 20090109
  Serious: Yes (Other)
  Sender: FDA-Public Use
  Company Number: CH-ALLERGAN-0808165US

PATIENT
  Sex: Female
  Weight: 20 kg

DRUGS (4)
  1. BOTOX LYOPHILISAT [Suspect]
     Indication: QUADRIPLEGIA
     Dosage: 250 UNITS, SINGLE
     Route: 030
     Dates: start: 20080521, end: 20080521
  2. OMEPRAZOLE [Concomitant]
     Indication: GASTROOESOPHAGEAL REFLUX DISEASE
     Dosage: 20 MG, UNK
     Route: 048
  3. LIORESAL [Concomitant]
     Indication: MUSCLE SPASTICITY
     Dosage: 40 MG, UNK
     Route: 048
  4. VALIUM [Concomitant]
     Indication: MUSCLE SPASTICITY
     Dosage: 3 MG, UNK
     Route: 048

REACTIONS (2)
  - DYSPHAGIA [None]
  - OVERDOSE [None]
